FAERS Safety Report 21074396 (Version 9)
Quarter: 2023Q2

REPORT INFORMATION
  Report Type: Spontaneous
  Country: CA (occurrence: CA)
  Receive Date: 20220713
  Receipt Date: 20230614
  Transmission Date: 20230721
  Serious: Yes (Other)
  Sender: FDA-Public Use
  Company Number: CA-PFIZER INC-202200933847

PATIENT
  Age: 26 Year
  Sex: Female

DRUGS (2)
  1. ABRILADA [Suspect]
     Active Substance: ADALIMUMAB-AFZB
     Indication: Hidradenitis
     Dosage: 40 MG, INDUCTION 160 MG WEEK 0, 80 MG WEEK 2 THEN MAINTENANCE AT 40MG Q WEEK STARTING WEEK 4
     Route: 058
     Dates: start: 20220510
  2. ABRILADA [Suspect]
     Active Substance: ADALIMUMAB-AFZB
     Dosage: 1 DF, 160 WEEK 0, 80 MG WEEK 2 THEN 40 MG EVERY WEEK PREFILLED SYRINGE
     Route: 058
     Dates: start: 20220510, end: 202306

REACTIONS (5)
  - Wrist fracture [Not Recovered/Not Resolved]
  - Ear infection [Not Recovered/Not Resolved]
  - Vaginal infection [Not Recovered/Not Resolved]
  - Psoriasis [Not Recovered/Not Resolved]
  - Device use issue [Unknown]

NARRATIVE: CASE EVENT DATE: 20220630
